FAERS Safety Report 23471097 (Version 1)
Quarter: 2024Q1

REPORT INFORMATION
  Report Type: Other
  Country: None (occurrence: US)
  Receive Date: 20240202
  Receipt Date: 20240202
  Transmission Date: 20240410
  Serious: Yes (Hospitalization)
  Sender: FDA-Public Use
  Company Number: US-B.Braun Medical Inc.-2152465

PATIENT
  Age: 79 Year
  Sex: Male

DRUGS (9)
  1. CEFTAZIDIME AND DEXTROSE [Suspect]
     Active Substance: CEFTAZIDIME
     Indication: Conjunctivitis
  2. MEROPENEM [Suspect]
     Active Substance: MEROPENEM
  3. SALINE [Suspect]
     Active Substance: SODIUM CHLORIDE
  4. VANCOMYCIN [Suspect]
     Active Substance: VANCOMYCIN
  5. DEXAMETHASONE\TOBRAMYCIN [Suspect]
     Active Substance: DEXAMETHASONE\TOBRAMYCIN
  6. AMOXICILLIN\CLAVULANIC ACID [Suspect]
     Active Substance: AMOXICILLIN\CLAVULANIC ACID
  7. Topical moxifloxacin [Concomitant]
  8. Bacitracin-polymyxin ointment [Concomitant]
  9. Antibacterial ?Avenova spray [Concomitant]

REACTIONS (2)
  - Pseudomonas infection [None]
  - Drug ineffective for unapproved indication [None]
